FAERS Safety Report 8003094-X (Version None)
Quarter: 2011Q4

REPORT INFORMATION
  Report Type: 
  Country: None (occurrence: None)
  Receive Date: 20111222
  Receipt Date: 20111209
  Transmission Date: 20120403
  Serious: Yes (Hospitalization)
  Sender: FDA-Public Use
  Company Number: PHHY2011JP105395

PATIENT
  Age: 38 Year
  Sex: Male

DRUGS (3)
  1. CYCLOSPORINE [Suspect]
     Indication: PROPHYLAXIS AGAINST GRAFT VERSUS HOST DISEASE
  2. METHOTREXATE [Concomitant]
     Indication: PROPHYLAXIS AGAINST GRAFT VERSUS HOST DISEASE
     Dosage: UNK UKN, UNK
  3. CYCLOSPORINE [Suspect]
     Indication: ALLOGENIC BONE MARROW TRANSPLANTATION THERAPY
     Dosage: UNK UKN, UNK

REACTIONS (14)
  - OXYGEN SATURATION DECREASED [None]
  - ELECTROCARDIOGRAM ST SEGMENT ELEVATION [None]
  - PYREXIA [None]
  - BLOOD PRESSURE DECREASED [None]
  - STREPTOCOCCAL INFECTION [None]
  - BLOOD CREATINE PHOSPHOKINASE INCREASED [None]
  - BLOOD CREATINE PHOSPHOKINASE MB INCREASED [None]
  - PNEUMONIA PNEUMOCOCCAL [None]
  - CARDIAC OUTPUT DECREASED [None]
  - CARDIAC FAILURE [None]
  - PERICARDITIS [None]
  - SINUS TACHYCARDIA [None]
  - COUGH [None]
  - ACUTE GRAFT VERSUS HOST DISEASE [None]
